FAERS Safety Report 15864636 (Version 1)
Quarter: 2019Q1

REPORT INFORMATION
  Report Type: Spontaneous
  Country: US (occurrence: US)
  Receive Date: 20190124
  Receipt Date: 20190124
  Transmission Date: 20190417
  Serious: No
  Sender: FDA-Public Use
  Company Number: US-ALLERGAN-1845403US

PATIENT
  Sex: Male

DRUGS (2)
  1. DORZOLAMIDE HYDROCHLORIDE AND TIMOLOL MALEATE [Concomitant]
     Active Substance: DORZOLAMIDE HYDROCHLORIDE\TIMOLOL MALEATE
     Indication: GLAUCOMA
     Dosage: ACTUAL: 1 GTT, 1-2 TIMES PER DAY
     Route: 047
     Dates: start: 2008
  2. PRED FORTE [Suspect]
     Active Substance: PREDNISOLONE ACETATE
     Indication: GLAUCOMA
     Dosage: ACTUAL: 1 GTT, 1-2 TIMES PER DAY
     Route: 047
     Dates: start: 2008

REACTIONS (2)
  - Intentional product misuse [Unknown]
  - Off label use [Unknown]
